FAERS Safety Report 8095465-0 (Version None)
Quarter: 2012Q1

REPORT INFORMATION
  Report Type: 
  Country: None (occurrence: None)
  Receive Date: 20120129
  Receipt Date: 20111216
  Transmission Date: 20120608
  Serious: No
  Sender: FDA-Public Use
  Company Number: US-ABBOTT-11P-163-0884296-00

PATIENT
  Age: 50 Year
  Sex: Female

DRUGS (3)
  1. IRON [Concomitant]
     Indication: PRODUCT USED FOR UNKNOWN INDICATION
  2. PREDNISONE TAB [Concomitant]
     Indication: PRODUCT USED FOR UNKNOWN INDICATION
     Dosage: WEANING OFF, WAS TAKING 10MG A DAY
  3. HUMIRA [Suspect]
     Indication: CROHN'S DISEASE
     Dosage: 2 INJECTIONS, LOADING DOSE
     Dates: start: 20111208

REACTIONS (2)
  - INJECTION SITE PAIN [None]
  - INJECTION SITE HAEMATOMA [None]
